FAERS Safety Report 9877792 (Version 1)
Quarter: 2014Q1

REPORT INFORMATION
  Report Type: Spontaneous
  Country: IT (occurrence: IT)
  Receive Date: 20140206
  Receipt Date: 20140206
  Transmission Date: 20141002
  Serious: Yes (Life-Threatening)
  Sender: FDA-Public Use
  Company Number: IT-SA-2014SA002916

PATIENT
  Age: 24 Month
  Sex: Male

DRUGS (5)
  1. MYOZYME [Suspect]
     Indication: GLYCOGEN STORAGE DISEASE TYPE II
     Route: 042
     Dates: start: 20110709
  2. MYOZYME [Suspect]
     Indication: GLYCOGEN STORAGE DISEASE TYPE II
     Route: 042
  3. OMEPRAZOLE [Concomitant]
  4. PROPRANOLOL HYDROCHLORIDE [Concomitant]
  5. SULFAMETHOXAZOLE/TRIMETHOPRIM [Concomitant]

REACTIONS (4)
  - Pulmonary function test decreased [Recovering/Resolving]
  - Posture abnormal [Unknown]
  - Drug ineffective [Unknown]
  - Hypotonia [Unknown]
